FAERS Safety Report 6527981-4 (Version None)
Quarter: 2009Q4

REPORT INFORMATION
  Report Type: 
  Country: None (occurrence: None)
  Receive Date: 20091229
  Receipt Date: 20091221
  Transmission Date: 20100525
  Serious: Yes (Hospitalization, Other)
  Sender: FDA-Public Use
  Company Number: 2009SP035360

PATIENT
  Age: 66 Year
  Sex: Female
  Weight: 96.6 kg

DRUGS (26)
  1. MIRTAZAPINE [Suspect]
     Indication: DEPRESSION
     Dosage: 7.5 MG;QD;PO 15 MG;QD;PO 30 MG;QD;PO
     Route: 048
     Dates: end: 20090415
  2. MIRTAZAPINE [Suspect]
     Indication: DEPRESSION
     Dosage: 7.5 MG;QD;PO 15 MG;QD;PO 30 MG;QD;PO
     Route: 048
     Dates: start: 20090416, end: 20090430
  3. MIRTAZAPINE [Suspect]
     Indication: DEPRESSION
     Dosage: 7.5 MG;QD;PO 15 MG;QD;PO 30 MG;QD;PO
     Route: 048
     Dates: start: 20090501, end: 20090615
  4. MIRTAZAPINE [Suspect]
     Indication: DEPRESSION
     Dosage: 7.5 MG;QD;PO 15 MG;QD;PO 30 MG;QD;PO
     Route: 048
     Dates: start: 20090616, end: 20090616
  5. MIRTAZAPINE [Suspect]
     Indication: DEPRESSION
     Dosage: 7.5 MG;QD;PO 15 MG;QD;PO 30 MG;QD;PO
     Route: 048
     Dates: start: 20090617, end: 20090617
  6. DEPAKENE [Suspect]
     Indication: DRUG USE FOR UNKNOWN INDICATION
     Dosage: 1500 MG;QD;PO; 900 MG;QD;PO; 600 MG;QD;PO; 450 MG;QD;PO; 300 MG;QD;PO; 150 MG;QD;PO
     Route: 048
     Dates: start: 20020101, end: 20060101
  7. DEPAKENE [Suspect]
     Indication: DRUG USE FOR UNKNOWN INDICATION
     Dosage: 1500 MG;QD;PO; 900 MG;QD;PO; 600 MG;QD;PO; 450 MG;QD;PO; 300 MG;QD;PO; 150 MG;QD;PO
     Route: 048
     Dates: start: 20020101, end: 20090617
  8. DEPAKENE [Suspect]
     Indication: DRUG USE FOR UNKNOWN INDICATION
     Dosage: 1500 MG;QD;PO; 900 MG;QD;PO; 600 MG;QD;PO; 450 MG;QD;PO; 300 MG;QD;PO; 150 MG;QD;PO
     Route: 048
     Dates: start: 20090618, end: 20090618
  9. DEPAKENE [Suspect]
     Indication: DRUG USE FOR UNKNOWN INDICATION
     Dosage: 1500 MG;QD;PO; 900 MG;QD;PO; 600 MG;QD;PO; 450 MG;QD;PO; 300 MG;QD;PO; 150 MG;QD;PO
     Route: 048
     Dates: start: 20090619, end: 20090619
  10. DEPAKENE [Suspect]
     Indication: DRUG USE FOR UNKNOWN INDICATION
     Dosage: 1500 MG;QD;PO; 900 MG;QD;PO; 600 MG;QD;PO; 450 MG;QD;PO; 300 MG;QD;PO; 150 MG;QD;PO
     Route: 048
     Dates: start: 20090620, end: 20090620
  11. DEPAKENE [Suspect]
     Indication: DRUG USE FOR UNKNOWN INDICATION
     Dosage: 1500 MG;QD;PO; 900 MG;QD;PO; 600 MG;QD;PO; 450 MG;QD;PO; 300 MG;QD;PO; 150 MG;QD;PO
     Route: 048
     Dates: start: 20090621, end: 20090621
  12. ZOLOFT [Suspect]
     Indication: DRUG USE FOR UNKNOWN INDICATION
     Dosage: 50 MG;QD;PO; 100 MG;QD;PO; 150 MG;QD;PO; 200 MG;QD;PO; 250 MG;QD;PO
     Route: 048
     Dates: start: 20090326, end: 20090407
  13. ZOLOFT [Suspect]
     Indication: DRUG USE FOR UNKNOWN INDICATION
     Dosage: 50 MG;QD;PO; 100 MG;QD;PO; 150 MG;QD;PO; 200 MG;QD;PO; 250 MG;QD;PO
     Route: 048
     Dates: start: 20090408, end: 20090423
  14. ZOLOFT [Suspect]
     Indication: DRUG USE FOR UNKNOWN INDICATION
     Dosage: 50 MG;QD;PO; 100 MG;QD;PO; 150 MG;QD;PO; 200 MG;QD;PO; 250 MG;QD;PO
     Route: 048
     Dates: start: 20090424, end: 20090426
  15. ZOLOFT [Suspect]
     Indication: DRUG USE FOR UNKNOWN INDICATION
     Dosage: 50 MG;QD;PO; 100 MG;QD;PO; 150 MG;QD;PO; 200 MG;QD;PO; 250 MG;QD;PO
     Route: 048
     Dates: start: 20090427, end: 20090511
  16. ZOLOFT [Suspect]
     Indication: DRUG USE FOR UNKNOWN INDICATION
     Dosage: 50 MG;QD;PO; 100 MG;QD;PO; 150 MG;QD;PO; 200 MG;QD;PO; 250 MG;QD;PO
     Route: 048
     Dates: start: 20090512, end: 20090612
  17. ZOLOFT [Suspect]
     Indication: DRUG USE FOR UNKNOWN INDICATION
     Dosage: 50 MG;QD;PO; 100 MG;QD;PO; 150 MG;QD;PO; 200 MG;QD;PO; 250 MG;QD;PO
     Route: 048
     Dates: start: 20090613
  18. METOPROLOL (METOPROLOL) [Suspect]
     Indication: HYPERTENSION
     Dosage: 47.5 MG;QD;PO
     Route: 048
  19. AMLODIPIN (AMLOPIPINE) [Suspect]
     Indication: HYPERTENSION
     Dosage: 10 MG;QD;PO
     Route: 048
  20. MARCUMAR [Concomitant]
  21. L-THYROXIN [Concomitant]
  22. LASIX [Concomitant]
  23. ASPIRIN [Concomitant]
  24. BENALAPRIL [Concomitant]
  25. ZOP [Concomitant]
  26. LAMICTAL [Concomitant]

REACTIONS (7)
  - ALANINE AMINOTRANSFERASE INCREASED [None]
  - ASPARTATE AMINOTRANSFERASE INCREASED [None]
  - BILE DUCT STONE [None]
  - BLOOD ALKALINE PHOSPHATASE INCREASED [None]
  - GAMMA-GLUTAMYLTRANSFERASE INCREASED [None]
  - POTENTIATING DRUG INTERACTION [None]
  - SPLENOMEGALY [None]
